FAERS Safety Report 9837854 (Version 1)
Quarter: 2013Q4

REPORT INFORMATION
  Report Type: Spontaneous
  Country: US (occurrence: None)
  Receive Date: 20131205
  Receipt Date: 20131205
  Transmission Date: 20140711
  Serious: No
  Sender: FDA-Public Use
  Company Number: 163-POMAL-13071236

PATIENT
  Age: 80 Year
  Sex: Male
  Weight: 81.6 kg

DRUGS (1)
  1. POMALYST [Suspect]
     Indication: PLASMA CELL MYELOMA
     Dosage: 4 MG, 21 IN 28 D, PO
     Route: 048
     Dates: start: 20130610

REACTIONS (5)
  - Mobility decreased [None]
  - Pruritus generalised [None]
  - Local swelling [None]
  - Fatigue [None]
  - Rash [None]
